FAERS Safety Report 10357151 (Version 1)
Quarter: 2014Q3

REPORT INFORMATION
  Report Type: Spontaneous
  Country: US (occurrence: US)
  Receive Date: 20140801
  Receipt Date: 20140801
  Transmission Date: 20150326
  Serious: No
  Sender: FDA-Public Use
  Company Number: US-PFIZER INC-2014211256

PATIENT
  Age: 82 Year
  Sex: Female
  Weight: 61.22 kg

DRUGS (3)
  1. SUTENT [Suspect]
     Active Substance: SUNITINIB MALATE
     Indication: LUNG NEOPLASM MALIGNANT
     Dosage: 50 MG DAILY, CYCLIC(28 DAYS ON THERAPY THAN OFF FOR TWO WEEKS)
     Dates: start: 201308
  2. SUTENT [Suspect]
     Active Substance: SUNITINIB MALATE
     Dosage: 25 MG DAILY, CYCLIC (28 DAYS ON THERAPY THAN OFF FOR TWO WEEKS)
  3. LISINOPRIL AND HYDROCHLOROTHIAZIDE [Concomitant]
     Active Substance: HYDROCHLOROTHIAZIDE\LISINOPRIL
     Indication: HYPERTENSION
     Dosage: 25 MG OF HYDROCHLOROTHIAZIDE/ 20 MG OF LISINOPRIL, DAILY

REACTIONS (3)
  - Off label use [Unknown]
  - Diarrhoea [Unknown]
  - Asthenia [Unknown]

NARRATIVE: CASE EVENT DATE: 201308
